FAERS Safety Report 18527508 (Version 1)
Quarter: 2020Q4

REPORT INFORMATION
  Report Type: Spontaneous
  Country: US (occurrence: US)
  Receive Date: 20201120
  Receipt Date: 20201120
  Transmission Date: 20210114
  Serious: Yes (Hospitalization)
  Sender: FDA-Public Use
  Company Number: None

PATIENT
  Age: 70 Year
  Sex: Female

DRUGS (9)
  1. IPRATROPIUM [Concomitant]
     Active Substance: IPRATROPIUM
  2. TRAMADOL. [Concomitant]
     Active Substance: TRAMADOL
  3. ENBREL [Suspect]
     Active Substance: ETANERCEPT
     Indication: RHEUMATOID ARTHRITIS
     Dosage: ?          OTHER FREQUENCY:ONCE A WEEK;?
     Route: 058
     Dates: start: 20150401
  4. METHOTREXATE. [Concomitant]
     Active Substance: METHOTREXATE
  5. HYDROCODONE [Concomitant]
     Active Substance: HYDROCODONE
  6. OXYCONTIN [Concomitant]
     Active Substance: OXYCODONE HYDROCHLORIDE
  7. MACRODANTIN [Concomitant]
     Active Substance: NITROFURANTOIN
  8. GABAPENTIN. [Concomitant]
     Active Substance: GABAPENTIN
  9. CELECOXIB. [Concomitant]
     Active Substance: CELECOXIB

REACTIONS (2)
  - Therapy interrupted [None]
  - Knee operation [None]

NARRATIVE: CASE EVENT DATE: 20201111
